FAERS Safety Report 17651642 (Version 1)
Quarter: 2020Q2

REPORT INFORMATION
  Report Type: Spontaneous
  Country: US (occurrence: US)
  Receive Date: 20200409
  Receipt Date: 20200409
  Transmission Date: 20200713
  Serious: Yes (Hospitalization)
  Sender: FDA-Public Use
  Company Number: None

PATIENT
  Age: 94 Year
  Sex: Male
  Weight: 146.8 kg

DRUGS (2)
  1. PACERONE [Suspect]
     Active Substance: AMIODARONE HYDROCHLORIDE
     Indication: PULMONARY FIBROSIS
     Route: 048
     Dates: start: 20171206, end: 20180209
  2. PACERONE [Suspect]
     Active Substance: AMIODARONE HYDROCHLORIDE
     Indication: RESPIRATORY FAILURE
     Route: 048
     Dates: start: 20171206, end: 20180209

REACTIONS (2)
  - Pulmonary fibrosis [None]
  - Diarrhoea [None]

NARRATIVE: CASE EVENT DATE: 20180129
